FAERS Safety Report 8078437-1 (Version None)
Quarter: 2012Q1

REPORT INFORMATION
  Report Type: 
  Country: None (occurrence: None)
  Receive Date: 20120127
  Receipt Date: 20110110
  Transmission Date: 20120608
  Serious: No
  Sender: FDA-Public Use
  Company Number: US-ABBOTT-10P-163-0642122-00

PATIENT
  Sex: Male
  Weight: 83.99 kg

DRUGS (20)
  1. CORDARONE [Concomitant]
     Indication: ARRHYTHMIA
     Route: 048
  2. LORTAB [Concomitant]
     Indication: PAIN
     Dosage: 7.5MG/500MG AS NEEDED
  3. LORTAB [Concomitant]
     Indication: CROHN'S DISEASE
  4. PENTASA [Concomitant]
     Indication: CROHN'S DISEASE
     Route: 048
  5. IMDUR [Concomitant]
     Indication: CARDIAC DISORDER
     Route: 048
  6. UROXATREL [Concomitant]
     Indication: PROSTATIC DISORDER
  7. NORVASC [Concomitant]
     Indication: CARDIAC DISORDER
     Route: 048
  8. UNKNOWN MEDICATION [Concomitant]
     Indication: HYPERSENSITIVITY
  9. PREVALITE [Concomitant]
     Indication: PRODUCT USED FOR UNKNOWN INDICATION
     Dosage: 1 SCOOP DAILY IN WATER
     Route: 048
  10. HUMIRA [Suspect]
     Indication: OFF LABEL USE
     Route: 058
     Dates: start: 20090301, end: 20090801
  11. MULTI-VITAMIN [Concomitant]
     Indication: VITAMIN SUPPLEMENTATION
  12. ASPIRIN [Concomitant]
     Indication: CARDIAC DISORDER
  13. HUMIRA [Suspect]
     Indication: CROHN'S DISEASE
     Route: 058
     Dates: start: 20101206
  14. VYTORIN [Concomitant]
     Indication: BLOOD CHOLESTEROL INCREASED
     Route: 048
  15. ATENOLOL [Concomitant]
     Indication: HYPERTENSION
     Route: 048
  16. HUMIRA [Suspect]
     Indication: COLITIS
  17. ENTOCORT EC [Concomitant]
     Indication: PRODUCT USED FOR UNKNOWN INDICATION
     Route: 048
  18. LEXAPRO [Concomitant]
     Indication: DEPRESSION
     Route: 048
  19. PLAVIX [Concomitant]
     Indication: PRODUCT USED FOR UNKNOWN INDICATION
     Route: 048
  20. POTASSIUM CHLORIDE [Concomitant]
     Indication: PRODUCT USED FOR UNKNOWN INDICATION
     Route: 048

REACTIONS (12)
  - INCREASED TENDENCY TO BRUISE [None]
  - COLITIS [None]
  - CONTUSION [None]
  - LIMB INJURY [None]
  - LACERATION [None]
  - SCAB [None]
  - EAR NEOPLASM [None]
  - SKIN ATROPHY [None]
  - RASH MACULAR [None]
  - HAEMORRHAGIC DIATHESIS [None]
  - HAEMORRHAGE [None]
  - TENDERNESS [None]
